FAERS Safety Report 5170515-X (Version None)
Quarter: 2006Q4

REPORT INFORMATION
  Report Type: 
  Country: None (occurrence: None)
  Receive Date: 20061204
  Receipt Date: 20061127
  Transmission Date: 20070319
  Serious: Yes (Hospitalization)
  Sender: FDA-Public Use
  Company Number: HQWYE088625SEP06

PATIENT
  Age: 50 Year
  Sex: Female

DRUGS (10)
  1. MYLOTARG [Suspect]
     Indication: ACUTE MYELOID LEUKAEMIA RECURRENT
     Dosage: 9 MG/M^2 1X PER 1 DAY; INTRAVENOUS DRIP; 9 MG/M^2 1X PER 1 DAY; INTRAVENOUS DRIP
     Route: 042
     Dates: start: 20060802, end: 20060802
  2. MYLOTARG [Suspect]
     Indication: ACUTE MYELOID LEUKAEMIA RECURRENT
     Dosage: 9 MG/M^2 1X PER 1 DAY; INTRAVENOUS DRIP; 9 MG/M^2 1X PER 1 DAY; INTRAVENOUS DRIP
     Route: 042
     Dates: start: 20060818, end: 20060818
  3. FUNGUARD (MICAFUNGIN SODIUM) [Concomitant]
  4. GALENIC /CILASTATIN/IMIPENEM [Concomitant]
  5. CLINDAMYCIN PHOSPHATE [Concomitant]
  6. CEFEPIME [Concomitant]
  7. MINOCYCLINE HCL [Concomitant]
  8. VORICONAZOLE [Concomitant]
  9. ISEPAMICIN SULFATE [Concomitant]
  10. ZANTAC [Concomitant]

REACTIONS (6)
  - BRONCHOPULMONARY ASPERGILLOSIS [None]
  - DEPRESSED LEVEL OF CONSCIOUSNESS [None]
  - DISEASE PROGRESSION [None]
  - HYPERAMMONAEMIA [None]
  - PYREXIA [None]
  - WHITE BLOOD CELL COUNT DECREASED [None]
